FAERS Safety Report 16145823 (Version 1)
Quarter: 2019Q2

REPORT INFORMATION
  Report Type: Spontaneous
  Country: US (occurrence: US)
  Receive Date: 20190401
  Receipt Date: 20190401
  Transmission Date: 20190711
  Serious: Yes (Other)
  Sender: FDA-Public Use
  Company Number: None

PATIENT
  Age: 65 Year
  Sex: Female
  Weight: 87 kg

DRUGS (2)
  1. PREDNISONE. [Suspect]
     Active Substance: PREDNISONE
  2. PREDISONE [Concomitant]
     Active Substance: PREDNISONE

REACTIONS (1)
  - Blood glucose increased [None]

NARRATIVE: CASE EVENT DATE: 20180705
